FAERS Safety Report 10360724 (Version 1)
Quarter: 2014Q3

REPORT INFORMATION
  Report Type: Spontaneous
  Country: US (occurrence: None)
  Receive Date: 20140731
  Receipt Date: 20140731
  Transmission Date: 20150326
  Serious: Yes (Congenital Anomaly)
  Sender: FDA-Public Use
  Company Number: 2014AP003738

PATIENT
  Age: 0 Day

DRUGS (1)
  1. PAROXETINE HYDROCHLORIDE. [Suspect]
     Active Substance: PAROXETINE HYDROCHLORIDE
     Indication: DEPRESSION
     Route: 064

REACTIONS (2)
  - Maternal drugs affecting foetus [None]
  - Bicuspid aortic valve [None]

NARRATIVE: CASE EVENT DATE: 20060721
